FAERS Safety Report 22041285 (Version 1)
Quarter: 2023Q1

REPORT INFORMATION
  Report Type: Spontaneous
  Country: US (occurrence: FR)
  Receive Date: 20230227
  Receipt Date: 20230227
  Transmission Date: 20230417
  Serious: Yes (Hospitalization, Other)
  Sender: FDA-Public Use
  Company Number: US-ABBVIE-4319553

PATIENT
  Age: 20 Year
  Sex: Female
  Weight: 60 kg

DRUGS (7)
  1. DEPAKOTE [Suspect]
     Active Substance: DIVALPROEX SODIUM
     Indication: Mania
     Route: 048
     Dates: start: 20230102, end: 20230104
  2. LOXAPINE [Suspect]
     Active Substance: LOXAPINE
     Indication: Mania
     Route: 048
     Dates: start: 20221215, end: 20221229
  3. RISPERIDONE [Suspect]
     Active Substance: RISPERIDONE
     Indication: Mania
     Route: 048
     Dates: start: 20221229, end: 20230103
  4. TROPATEPINE HYDROCHLORIDE [Suspect]
     Active Substance: TROPATEPINE HYDROCHLORIDE
     Indication: Anticholinergic syndrome
     Route: 048
     Dates: start: 20221223, end: 20230103
  5. CYAMEMAZINE [Suspect]
     Active Substance: CYAMEMAZINE
     Indication: Mania
     Route: 048
     Dates: start: 20221226, end: 20230103
  6. ARIPIPRAZOLE [Suspect]
     Active Substance: ARIPIPRAZOLE
     Indication: Mania
     Dosage: 2DF
     Route: 048
     Dates: start: 20221215, end: 20230103
  7. DIAZEPAM [Suspect]
     Active Substance: DIAZEPAM
     Indication: Mania
     Route: 048
     Dates: start: 20221214, end: 20230104

REACTIONS (3)
  - Hyperleukocytosis [Recovered/Resolved]
  - Transaminases increased [Recovering/Resolving]
  - Neuroleptic malignant syndrome [Recovered/Resolved]
